FAERS Safety Report 21967724 (Version 1)
Quarter: 2023Q1

REPORT INFORMATION
  Report Type: Spontaneous
  Country: FR (occurrence: FR)
  Receive Date: 20230208
  Receipt Date: 20230208
  Transmission Date: 20230418
  Serious: Yes (Disabling)
  Sender: FDA-Public Use
  Company Number: None

PATIENT
  Age: 48 Year
  Sex: Female
  Weight: 54 kg

DRUGS (5)
  1. ARIPIPRAZOLE [Interacting]
     Active Substance: ARIPIPRAZOLE
     Indication: Bipolar disorder
     Dates: start: 202210, end: 20230112
  2. TERALITHE [Interacting]
     Active Substance: LITHIUM CARBONATE
     Indication: Bipolar disorder
     Dates: start: 20221221, end: 20230112
  3. TERALITHE [Interacting]
     Active Substance: LITHIUM CARBONATE
     Dates: start: 2018, end: 2021
  4. TERALITHE [Interacting]
     Active Substance: LITHIUM CARBONATE
     Dates: start: 202210, end: 20221221
  5. LORAZEPAM [Concomitant]
     Active Substance: LORAZEPAM
     Indication: Bipolar disorder
     Dates: start: 202210

REACTIONS (3)
  - Dystonia [Not Recovered/Not Resolved]
  - Parkinsonism [Not Recovered/Not Resolved]
  - Drug interaction [Unknown]

NARRATIVE: CASE EVENT DATE: 20221201
